FAERS Safety Report 6686540-3 (Version None)
Quarter: 2010Q2

REPORT INFORMATION
  Report Type: 
  Country: None (occurrence: None)
  Receive Date: 20100419
  Receipt Date: 20100405
  Transmission Date: 20101027
  Serious: Yes (Hospitalization)
  Sender: FDA-Public Use
  Company Number: ES-ELI_LILLY_AND_COMPANY-ES201004001019

PATIENT
  Sex: Male
  Weight: 74 kg

DRUGS (2)
  1. FORTEO [Suspect]
     Dosage: 20 UG, DAILY (1/D)
     Route: 058
     Dates: start: 20100201, end: 20100330
  2. TRAMADOL HCL [Concomitant]
     Indication: BACK PAIN
     Dosage: UNK, UNKNOWN
     Route: 048

REACTIONS (1)
  - ACUTE MYOCARDIAL INFARCTION [None]
